FAERS Safety Report 23771820 (Version 1)
Quarter: 2024Q2

REPORT INFORMATION
  Report Type: Spontaneous
  Country: US (occurrence: US)
  Receive Date: 20240423
  Receipt Date: 20240423
  Transmission Date: 20240715
  Serious: Yes (Other)
  Sender: FDA-Public Use
  Company Number: US-Vifor (International) Inc.-VIT-2024-03483

PATIENT
  Age: 54 Year
  Sex: Male
  Weight: 72.5 kg

DRUGS (4)
  1. MIRCERA [Suspect]
     Active Substance: METHOXY POLYETHYLENE GLYCOL-EPOETIN BETA
     Indication: Product used for unknown indication
  2. MIRCERA [Suspect]
     Active Substance: METHOXY POLYETHYLENE GLYCOL-EPOETIN BETA
     Dosage: DOSE NUMBER: 8 AND DOSE CATEGORY: DOSE 6-10
     Dates: start: 20240223
  3. HECTOROL [Concomitant]
     Active Substance: DOXERCALCIFEROL
  4. BACITRACIN;NEOMYCIN;POLYMYXIN [Concomitant]

REACTIONS (3)
  - Drug hypersensitivity [Recovered/Resolved]
  - Cardiac arrest [Recovered/Resolved]
  - Loss of consciousness [Recovered/Resolved]

NARRATIVE: CASE EVENT DATE: 20240223
